FAERS Safety Report 4296410-6 (Version None)
Quarter: 2004Q1

REPORT INFORMATION
  Report Type: 
  Country: None (occurrence: None)
  Receive Date: 20040212
  Receipt Date: 20040203
  Transmission Date: 20041129
  Serious: Yes (Hospitalization, Other)
  Sender: FDA-Public Use
  Company Number: 2004-01-0029

PATIENT
  Age: 49 Year
  Sex: Male
  Weight: 67 kg

DRUGS (2)
  1. VIRAFERONPEG [Suspect]
     Indication: HEPATITIS C
     Dosage: 64 UG QW SUBCUTANEOUS
     Route: 058
     Dates: start: 20030110, end: 20031110
  2. REBETOL [Suspect]
     Indication: HEPATITIS C
     Dosage: 1000 MG QD ORAL
     Route: 048
     Dates: start: 20030110, end: 20031110

REACTIONS (4)
  - HAEMATOMA [None]
  - INJECTION SITE INFLAMMATION [None]
  - INJECTION SITE NECROSIS [None]
  - INJECTION SITE PAIN [None]
